FAERS Safety Report 25708088 (Version 2)
Quarter: 2025Q4

REPORT INFORMATION
  Report Type: Spontaneous
  Country: US (occurrence: US)
  Receive Date: 20250820
  Receipt Date: 20251208
  Transmission Date: 20260117
  Serious: Yes (Other)
  Sender: ELI LILLY AND COMPANY
  Company Number: US-ELI_LILLY_AND_COMPANY-US202508010988

PATIENT
  Age: 66 Year
  Sex: Female
  Weight: 68.027 kg

DRUGS (6)
  1. KISUNLA [Suspect]
     Active Substance: DONANEMAB-AZBT
     Indication: Dementia Alzheimer^s type
     Dosage: 700 MG, MONTHLY (1/M)
     Route: 042
     Dates: start: 20250625
  2. KISUNLA [Suspect]
     Active Substance: DONANEMAB-AZBT
     Dosage: 700 MG, MONTHLY (1/M) (SECOND INFUSION)
     Route: 042
     Dates: start: 20250723
  3. MOBIC [Concomitant]
     Active Substance: MELOXICAM
     Indication: Product used for unknown indication
     Dosage: UNK UNK, UNKNOWN
     Route: 065
  4. METOPROLOL [Concomitant]
     Active Substance: METOPROLOL
     Indication: Product used for unknown indication
     Dosage: UNK UNK, UNKNOWN
     Route: 065
  5. SYNTHROID [Concomitant]
     Active Substance: LEVOTHYROXINE SODIUM
     Indication: Product used for unknown indication
     Dosage: UNK UNK, UNKNOWN
     Route: 065
  6. MAXZIDE [Concomitant]
     Active Substance: HYDROCHLOROTHIAZIDE\TRIAMTERENE
     Indication: Product used for unknown indication
     Dosage: UNK UNK, UNKNOWN
     Route: 065

REACTIONS (2)
  - Loss of consciousness [Recovered/Resolved]
  - Anaphylactic reaction [Recovered/Resolved]

NARRATIVE: CASE EVENT DATE: 20250723
